FAERS Safety Report 6137553-1 (Version None)
Quarter: 2009Q1

REPORT INFORMATION
  Report Type: 
  Country: None (occurrence: None)
  Receive Date: 20090326
  Receipt Date: 20090212
  Transmission Date: 20090719
  Serious: Yes (Death, Life-Threatening)
  Sender: FDA-Public Use
  Company Number: 2009EU000597

PATIENT
  Age: 31 Year
  Sex: Male

DRUGS (10)
  1. PROGRAF [Suspect]
     Indication: HEART TRANSPLANT
     Dosage: 2 MG, BID, ORAL
     Route: 048
     Dates: end: 20090107
  2. IMMUNE GLOBULIN (HUMAN) [Suspect]
     Indication: TRANSPLANT REJECTION
     Dosage: 30 G, TOTAL DOSE, IV NOS
     Route: 042
     Dates: start: 20090106, end: 20090107
  3. BACTRIM [Suspect]
     Indication: HEART TRANSPLANT REJECTION
     Dosage: 1 DF, ORAL
     Route: 048
     Dates: start: 20090106, end: 20090107
  4. CELLCEPT [Suspect]
     Indication: HEART TRANSPLANT
     Dosage: 1 MG, BID, ORAL
     Route: 048
     Dates: end: 20090107
  5. PREDNISOLONE [Suspect]
     Indication: HEART TRANSPLANT
     Dosage: 10 MG, ORAL
     Route: 048
     Dates: end: 20090107
  6. PLAVIX [Suspect]
     Indication: COMPLICATIONS OF TRANSPLANTED HEART
     Dosage: 75 MG, ORAL
     Route: 048
     Dates: end: 20090107
  7. BISOPROLOL FUMARATE [Concomitant]
  8. RAMIPRIL [Concomitant]
  9. KARDEGIC (ACETYLSALICYLIC LYSINE) [Concomitant]
  10. VASTEN (AMLODIPINE BESILATE) [Concomitant]

REACTIONS (3)
  - CARDIO-RESPIRATORY ARREST [None]
  - DISCOMFORT [None]
  - RESPIRATORY DISORDER [None]
